FAERS Safety Report 6787484-9 (Version None)
Quarter: 2010Q2

REPORT INFORMATION
  Report Type: 
  Country: None (occurrence: None)
  Receive Date: 20100623
  Receipt Date: 20070813
  Transmission Date: 20101027
  Serious: No
  Sender: FDA-Public Use
  Company Number: US-PFIZER INC-2007031017

PATIENT
  Sex: Female
  Weight: 54.88 kg

DRUGS (5)
  1. DEPO-PROVERA SUSPENSION/INJ [Suspect]
     Indication: CONTRACEPTION
     Dosage: LAST INJECTION
     Route: 030
     Dates: start: 20070223, end: 20070223
  2. FOLIC ACID [Concomitant]
  3. KEPPRA [Concomitant]
  4. DILANTIN [Concomitant]
  5. IBUPROFEN [Concomitant]

REACTIONS (6)
  - ASTHENIA [None]
  - DYSMENORRHOEA [None]
  - FEELING COLD [None]
  - MENORRHAGIA [None]
  - VAGINAL INFECTION [None]
  - WEIGHT INCREASED [None]
